FAERS Safety Report 7242317-1 (Version None)
Quarter: 2011Q1

REPORT INFORMATION
  Report Type: 
  Country: None (occurrence: None)
  Receive Date: 20110125
  Receipt Date: 20110114
  Transmission Date: 20110831
  Serious: Yes (Hospitalization)
  Sender: FDA-Public Use
  Company Number: US-BIOGENIDEC-2010BI041453

PATIENT
  Age: 39 Year
  Sex: Female

DRUGS (1)
  1. TYSABRI [Suspect]
     Indication: MULTIPLE SCLEROSIS
     Route: 042
     Dates: start: 20091012, end: 20101025

REACTIONS (4)
  - NUCLEAR MAGNETIC RESONANCE IMAGING ABNORMAL [None]
  - LOSS OF CONSCIOUSNESS [None]
  - HEARING IMPAIRED [None]
  - POST LUMBAR PUNCTURE SYNDROME [None]
